FAERS Safety Report 20842806 (Version 7)
Quarter: 2022Q4

REPORT INFORMATION
  Report Type: Spontaneous
  Country: US (occurrence: US)
  Receive Date: 20220518
  Receipt Date: 20221110
  Transmission Date: 20230113
  Serious: Yes (Other)
  Sender: FDA-Public Use
  Company Number: US-ORPHANEU-2022001894

PATIENT

DRUGS (10)
  1. ISTURISA [Suspect]
     Active Substance: OSILODROSTAT PHOSPHATE
     Indication: Pituitary-dependent Cushing^s syndrome
     Dosage: 2 TABLETS TWO TIMES PER DAY
     Route: 048
     Dates: start: 20220414, end: 202204
  2. ISTURISA [Suspect]
     Active Substance: OSILODROSTAT PHOSPHATE
     Indication: Cushing^s syndrome
     Dosage: 2 MILLIGRAM, BID
     Route: 048
     Dates: start: 20220415, end: 2022
  3. ISTURISA [Suspect]
     Active Substance: OSILODROSTAT PHOSPHATE
     Dosage: 3 MILLIGRAM, BID
     Route: 048
     Dates: start: 2022, end: 2022
  4. ISTURISA [Suspect]
     Active Substance: OSILODROSTAT PHOSPHATE
     Dosage: 4 MILLIGRAM, BID
     Route: 048
     Dates: start: 20220706
  5. NP THYROID [Concomitant]
     Active Substance: LEVOTHYROXINE\LIOTHYRONINE
     Indication: Hypothyroidism
     Dosage: 60 MG IN THE AFTERNOON AND 90 MG IN THE MORNING
  6. VITAMIN D NOS [Concomitant]
     Active Substance: VITAMIN D NOS
     Indication: Vitamin D deficiency
     Dosage: UNK, QD
  7. HYDROCORTISONE [Concomitant]
     Active Substance: HYDROCORTISONE
     Indication: Cortisol decreased
     Dosage: 5 MILLIGRAM, PRN
  8. SOMATROPIN [Concomitant]
     Active Substance: SOMATROPIN
     Indication: Product used for unknown indication
     Dosage: 20 MG/2 ML SC INJECTION
     Route: 058
  9. MUCINEX [Concomitant]
     Active Substance: GUAIFENESIN
     Indication: Product used for unknown indication
     Dosage: 30 MILLIGRAM, BID
  10. LORATADINE [Concomitant]
     Active Substance: LORATADINE
     Indication: Hypersensitivity
     Dosage: 10 MILLIGRAM, QD
     Dates: start: 20220531

REACTIONS (23)
  - Diabetes insipidus [Not Recovered/Not Resolved]
  - Growth hormone deficiency [Unknown]
  - Polyuria [Not Recovered/Not Resolved]
  - Thirst [Not Recovered/Not Resolved]
  - Nasopharyngitis [Unknown]
  - Cough [Unknown]
  - Pain [Unknown]
  - Insomnia [Unknown]
  - Skin swelling [Unknown]
  - Nasal septum perforation [Not Recovered/Not Resolved]
  - Influenza like illness [Unknown]
  - Bone pain [Not Recovered/Not Resolved]
  - Weight decreased [Unknown]
  - Pain in extremity [Unknown]
  - Gait disturbance [Unknown]
  - Migraine [Unknown]
  - Urinary incontinence [Unknown]
  - Nausea [Recovered/Resolved]
  - Headache [Unknown]
  - Blood pressure decreased [Unknown]
  - Swelling [Unknown]
  - Product dose omission issue [Recovered/Resolved]
  - Drug ineffective [Recovered/Resolved]

NARRATIVE: CASE EVENT DATE: 20220101
